FAERS Safety Report 6211387-1 (Version None)
Quarter: 2009Q2

REPORT INFORMATION
  Report Type: 
  Country: None (occurrence: None)
  Receive Date: 20090522
  Receipt Date: 20090415
  Transmission Date: 20091009
  Serious: No
  Sender: FDA-Public Use
  Company Number: 8039581

PATIENT
  Age: 30 Year
  Sex: Female
  Weight: 63.5 kg

DRUGS (7)
  1. CIMZIA [Suspect]
     Indication: CROHN'S DISEASE
     Dosage: 400 MG SC
     Route: 058
     Dates: start: 20080827
  2. PREDNISONE [Concomitant]
  3. METHOTREXATE [Concomitant]
  4. ASACOL [Concomitant]
  5. LOMOTIL [Concomitant]
  6. FOLIC ACID [Concomitant]
  7. PAXIL [Concomitant]

REACTIONS (3)
  - ANAEMIA [None]
  - INFLAMMATION [None]
  - INSOMNIA [None]
